FAERS Safety Report 7461227-8 (Version None)
Quarter: 2011Q2

REPORT INFORMATION
  Report Type: 
  Country: None (occurrence: None)
  Receive Date: 20110506
  Receipt Date: 20110503
  Transmission Date: 20111010
  Serious: Yes (Hospitalization)
  Sender: FDA-Public Use
  Company Number: FR-BRISTOL-MYERS SQUIBB COMPANY-15677917

PATIENT
  Age: 55 Year
  Sex: Male

DRUGS (1)
  1. ABILIFY [Suspect]
     Indication: BIPOLAR DISORDER
     Dosage: REDUCED TO 20MG THEN 15MG
     Dates: start: 20110331, end: 20110414

REACTIONS (2)
  - MANIA [None]
  - AGITATION [None]
